FAERS Safety Report 16925602 (Version 1)
Quarter: 2019Q4

REPORT INFORMATION
  Report Type: Spontaneous
  Country: US (occurrence: US)
  Receive Date: 20191016
  Receipt Date: 20191016
  Transmission Date: 20200122
  Serious: Yes (Hospitalization)
  Sender: FDA-Public Use
  Company Number: None

PATIENT
  Age: 60 Year
  Sex: Male
  Weight: 99 kg

DRUGS (1)
  1. OCRELIZUMAB. [Suspect]
     Active Substance: OCRELIZUMAB
     Indication: MULTIPLE SCLEROSIS
     Dates: start: 20171004, end: 20191007

REACTIONS (4)
  - Pleural effusion [None]
  - Atelectasis [None]
  - Pericardial effusion [None]
  - Urinary tract infection [None]

NARRATIVE: CASE EVENT DATE: 20191004
